FAERS Safety Report 15273928 (Version 4)
Quarter: 2018Q4

REPORT INFORMATION
  Report Type: Spontaneous
  Country: US (occurrence: US)
  Receive Date: 20180814
  Receipt Date: 20181220
  Transmission Date: 20190204
  Serious: Yes (Hospitalization, Other)
  Sender: FDA-Public Use
  Company Number: US-BRISTOL-MYERS SQUIBB COMPANY-BMS-2018-072941

PATIENT
  Age: 59 Year
  Sex: Male

DRUGS (1)
  1. ORENCIA [Suspect]
     Active Substance: ABATACEPT
     Indication: RHEUMATOID ARTHRITIS
     Dosage: 125 MG, QWK
     Route: 058
     Dates: start: 20180301

REACTIONS (6)
  - Rhinorrhoea [Unknown]
  - Hypersensitivity [Unknown]
  - Knee operation [Unknown]
  - Sneezing [Unknown]
  - Cough [Unknown]
  - Hospitalisation [Unknown]

NARRATIVE: CASE EVENT DATE: 201803
